FAERS Safety Report 4647360-4 (Version None)
Quarter: 2005Q2

REPORT INFORMATION
  Report Type: 
  Country: None (occurrence: None)
  Receive Date: 20050426
  Receipt Date: 20050426
  Transmission Date: 20051028
  Serious: Yes (Death)
  Sender: FDA-Public Use
  Company Number: None

PATIENT
  Sex: Female
  Weight: 53.0709 kg

DRUGS (2)
  1. HEPARIN [Suspect]
     Indication: RENAL FAILURE
     Dates: start: 20041023, end: 20050223
  2. HEPARIN [Suspect]
     Indication: RENAL FAILURE
     Dates: start: 20050223, end: 20050224

REACTIONS (3)
  - FALL [None]
  - HAEMORRHAGE [None]
  - OVERDOSE [None]
